FAERS Safety Report 20006295 (Version 1)
Quarter: 2021Q4

REPORT INFORMATION
  Report Type: Spontaneous
  Country: IL (occurrence: IL)
  Receive Date: 20211028
  Receipt Date: 20211028
  Transmission Date: 20220303
  Serious: Yes (Death, Other)
  Sender: FDA-Public Use
  Company Number: IL-TEVAIL-2021-IL-1969179

PATIENT
  Age: 59 Year
  Sex: Female

DRUGS (20)
  1. AMPICILLIN [Suspect]
     Active Substance: AMPICILLIN
     Indication: Antibiotic therapy
     Route: 065
  2. EPINEPHRINE [Suspect]
     Active Substance: EPINEPHRINE
     Indication: Cardiac failure
     Route: 065
  3. EPINEPHRINE [Suspect]
     Active Substance: EPINEPHRINE
     Indication: Respiratory failure
  4. EPINEPHRINE [Suspect]
     Active Substance: EPINEPHRINE
     Indication: Shock
  5. CEFTRIAXONE [Suspect]
     Active Substance: CEFTRIAXONE
     Indication: Antibiotic therapy
     Route: 065
  6. CLINDAMYCIN [Suspect]
     Active Substance: CLINDAMYCIN
     Indication: Antibiotic therapy
     Route: 065
  7. HYDROCORTISONE [Suspect]
     Active Substance: HYDROCORTISONE
     Indication: Cardiac failure
     Route: 065
  8. HYDROCORTISONE [Suspect]
     Active Substance: HYDROCORTISONE
     Indication: Respiratory failure
  9. HYDROCORTISONE [Suspect]
     Active Substance: HYDROCORTISONE
     Indication: Shock
  10. MUCOMYST [Suspect]
     Active Substance: ACETYLCYSTEINE
     Indication: Cardiac failure
     Route: 065
  11. MUCOMYST [Suspect]
     Active Substance: ACETYLCYSTEINE
     Indication: Respiratory failure
  12. MUCOMYST [Suspect]
     Active Substance: ACETYLCYSTEINE
     Indication: Shock
  13. NOREPINEPHRINE [Suspect]
     Active Substance: NOREPINEPHRINE
     Indication: Cardiac failure
     Route: 065
  14. NOREPINEPHRINE [Suspect]
     Active Substance: NOREPINEPHRINE
     Indication: Respiratory failure
  15. NOREPINEPHRINE [Suspect]
     Active Substance: NOREPINEPHRINE
     Indication: Shock
  16. TERLIPRESSIN [Suspect]
     Active Substance: TERLIPRESSIN
     Indication: Cardiac failure
     Route: 065
  17. TERLIPRESSIN [Suspect]
     Active Substance: TERLIPRESSIN
     Indication: Respiratory failure
  18. TERLIPRESSIN [Suspect]
     Active Substance: TERLIPRESSIN
     Indication: Shock
  19. MEROPENEM [Concomitant]
     Active Substance: MEROPENEM
     Indication: Antibiotic therapy
     Route: 065
  20. FLUCONAZOLE [Concomitant]
     Active Substance: FLUCONAZOLE
     Indication: Antibiotic therapy
     Route: 065

REACTIONS (3)
  - Diarrhoea [Unknown]
  - Oedema peripheral [Unknown]
  - Drug ineffective [Unknown]

NARRATIVE: CASE EVENT DATE: 20200101
